FAERS Safety Report 12998219 (Version 2)
Quarter: 2016Q4

REPORT INFORMATION
  Report Type: Spontaneous
  Country: US (occurrence: US)
  Receive Date: 20161205
  Receipt Date: 20161229
  Transmission Date: 20170207
  Serious: No
  Sender: FDA-Public Use
  Company Number: US-PFIZER INC-2016560992

PATIENT
  Sex: Female

DRUGS (1)
  1. XELJANZ XR [Suspect]
     Active Substance: TOFACITINIB CITRATE
     Dosage: 11 MG, UNK

REACTIONS (15)
  - Alopecia [Unknown]
  - Anxiety [Unknown]
  - Rhinitis allergic [Unknown]
  - Dry mouth [Unknown]
  - Musculoskeletal stiffness [Unknown]
  - Neck pain [Unknown]
  - Swelling [Unknown]
  - Dyspepsia [Unknown]
  - Headache [Unknown]
  - Depression [Unknown]
  - Dry eye [Unknown]
  - Pruritus [Unknown]
  - Back pain [Unknown]
  - Arthralgia [Unknown]
  - Myalgia [Unknown]
